FAERS Safety Report 22604413 (Version 1)
Quarter: 2023Q2

REPORT INFORMATION
  Report Type: Spontaneous
  Country: KR (occurrence: KR)
  Receive Date: 20230615
  Receipt Date: 20230615
  Transmission Date: 20230721
  Serious: Yes (Hospitalization)
  Sender: FDA-Public Use
  Company Number: KR-drreddys-SPO/KRO/23/0167497

PATIENT
  Age: 38 Year
  Sex: Male
  Weight: 77.9 kg

DRUGS (3)
  1. AZACITIDINE [Suspect]
     Active Substance: AZACITIDINE
     Indication: Acute myeloid leukaemia
     Route: 058
     Dates: start: 20230417
  2. VIVIR [Concomitant]
     Indication: Infection prophylaxis
     Route: 048
     Dates: start: 20220905
  3. SULFAMETHOXAZOLE\TRIMETHOPRIM [Concomitant]
     Active Substance: SULFAMETHOXAZOLE\TRIMETHOPRIM
     Indication: Infection prophylaxis
     Route: 048
     Dates: start: 20230518

REACTIONS (1)
  - Graft versus host disease in lung [Recovering/Resolving]

NARRATIVE: CASE EVENT DATE: 20230605
